FAERS Safety Report 22134156 (Version 1)
Quarter: 2023Q1

REPORT INFORMATION
  Report Type: Spontaneous
  Country: FR (occurrence: FR)
  Receive Date: 20230324
  Receipt Date: 20230324
  Transmission Date: 20230417
  Serious: Yes (Other)
  Sender: FDA-Public Use
  Company Number: None

PATIENT
  Age: 53 Year
  Sex: Male

DRUGS (13)
  1. DEXAMETHASONE [Suspect]
     Active Substance: DEXAMETHASONE
     Indication: Metabolic surgery
     Dosage: DOSAGE NOT SPECIFIED
     Route: 042
     Dates: start: 20221214, end: 20221214
  2. MORPHINE [Suspect]
     Active Substance: MORPHINE
     Indication: Procedural pain
     Dosage: DOSAGE NOT SPECIFIED
     Route: 042
     Dates: start: 20221214, end: 20221214
  3. CEFTRIAXONE [Suspect]
     Active Substance: CEFTRIAXONE
     Indication: Metabolic surgery
     Dosage: CEFTRIAXONE MYLAN
     Route: 042
     Dates: start: 20221214, end: 20221214
  4. KETOPROFEN [Suspect]
     Active Substance: KETOPROFEN
     Indication: Metabolic surgery
     Dosage: DOSAGE NOT SPECIFIED
     Route: 048
     Dates: start: 20221214, end: 20221220
  5. CISATRACURIUM [Suspect]
     Active Substance: CISATRACURIUM
     Indication: Metabolic surgery
     Dosage: DOSAGE NOT SPECIFIED
     Route: 042
     Dates: start: 20221214, end: 20221214
  6. ESOMEPRAZOLE [Suspect]
     Active Substance: ESOMEPRAZOLE
     Indication: Prophylaxis against gastrointestinal ulcer
     Dosage: DOSAGE NOT SPECIFIED
     Route: 048
     Dates: start: 20221214, end: 20221220
  7. PHLOROGLUCINOL [Suspect]
     Active Substance: PHLOROGLUCINOL
     Indication: Metabolic surgery
     Dosage: DOSAGE NOT SPECIFIED
     Route: 048
     Dates: start: 20221214, end: 20221220
  8. GENTAMICIN [Suspect]
     Active Substance: GENTAMICIN
     Indication: Metabolic surgery
     Dosage: DOSAGE NOT SPECIFIED
     Route: 042
     Dates: start: 20221214, end: 20221214
  9. ACUPAN [Suspect]
     Active Substance: NEFOPAM HYDROCHLORIDE
     Indication: Procedural pain
     Dosage: DOSAGE NOT SPECIFIED
     Route: 042
     Dates: start: 20221214, end: 20221214
  10. LOVENOX [Suspect]
     Active Substance: ENOXAPARIN SODIUM
     Indication: Thrombosis prophylaxis
     Dosage: 4 000 UI ANTI-XA/0,4 ML,
     Route: 058
     Dates: start: 20221214, end: 20221214
  11. LIDOCAINE [Suspect]
     Active Substance: LIDOCAINE
     Indication: Metabolic surgery
     Dosage: DOSAGE NOT SPECIFIED
     Route: 042
     Dates: start: 20221214, end: 20221214
  12. EPHEDRINE HYDROCHLORIDE [Suspect]
     Active Substance: EPHEDRINE HYDROCHLORIDE
     Indication: Metabolic surgery
     Dosage: DOSAGE NOT SPECIFIED
     Route: 042
     Dates: start: 20221214, end: 20221214
  13. PROPOFOL LIPURO [Suspect]
     Active Substance: PROPOFOL
     Indication: Metabolic surgery
     Dosage: DOSAGE NOT SPECIFIED
     Route: 042
     Dates: start: 20221214, end: 20221214

REACTIONS (2)
  - Toxic skin eruption [Recovered/Resolved]
  - Eosinophilia [Recovered/Resolved]

NARRATIVE: CASE EVENT DATE: 20221214
